FAERS Safety Report 22740470 (Version 2)
Quarter: 2025Q3

REPORT INFORMATION
  Report Type: Spontaneous
  Country: US (occurrence: US)
  Receive Date: 20230724
  Receipt Date: 20250720
  Transmission Date: 20251021
  Serious: Yes (Other)
  Sender: AUROBINDO
  Company Number: US-AUROBINDO-AUR-APL-2023-048756

PATIENT
  Age: 14 Year
  Sex: Male

DRUGS (6)
  1. CYCLOPHOSPHAMIDE [Suspect]
     Active Substance: CYCLOPHOSPHAMIDE
     Indication: Post transplant lymphoproliferative disorder
     Route: 065
  2. METHOTREXATE [Suspect]
     Active Substance: METHOTREXATE
     Indication: Post transplant lymphoproliferative disorder
     Route: 065
  3. VINCRISTINE [Suspect]
     Active Substance: VINCRISTINE
     Indication: Post transplant lymphoproliferative disorder
     Route: 065
  4. TACROLIMUS [Concomitant]
     Active Substance: TACROLIMUS
     Indication: Renal transplant
     Route: 065
  5. PREDNISONE [Concomitant]
     Active Substance: PREDNISONE
     Indication: Renal transplant
     Route: 065
  6. RITUXIMAB [Concomitant]
     Active Substance: RITUXIMAB
     Indication: Renal transplant
     Route: 065

REACTIONS (1)
  - Drug ineffective [Unknown]
